FAERS Safety Report 8885342 (Version 3)
Quarter: 2013Q4

REPORT INFORMATION
  Report Type: Report from Study
  Country: US (occurrence: US)
  Receive Date: 20121101
  Receipt Date: 20131217
  Transmission Date: 20140711
  Serious: Yes (Death)
  Sender: FDA-Public Use
  Company Number: US-ROCHE-1151266

PATIENT
  Sex: Female
  Weight: 57.1 kg

DRUGS (19)
  1. AVASTIN [Suspect]
     Indication: LUNG NEOPLASM MALIGNANT
     Route: 042
     Dates: start: 20110825
  2. AVASTIN [Suspect]
     Indication: LUNG NEOPLASM MALIGNANT
     Route: 042
     Dates: start: 20111221
  3. AVASTIN [Suspect]
     Route: 042
     Dates: start: 20120104, end: 20120104
  4. AVASTIN [Suspect]
     Route: 042
     Dates: start: 20120118, end: 20120118
  5. XELODA [Suspect]
     Indication: PRODUCT USED FOR UNKNOWN INDICATION
     Route: 048
  6. ALIMTA [Concomitant]
     Route: 065
  7. TAXOL [Concomitant]
     Route: 065
     Dates: start: 20110323
  8. TAXOL [Concomitant]
     Route: 065
     Dates: start: 20110721
  9. CARBOPLATIN [Concomitant]
     Route: 065
     Dates: start: 20110323
  10. CARBOPLATIN [Concomitant]
     Route: 065
     Dates: start: 20110721
  11. XGEVA [Concomitant]
  12. ALOXI [Concomitant]
     Route: 042
  13. DECADRON [Concomitant]
     Route: 042
  14. CYANOCOBALAMIN [Concomitant]
     Route: 042
  15. ACETAMINOPHEN [Concomitant]
     Route: 048
  16. PEMETREXED [Concomitant]
     Route: 042
  17. NORMAL SALINE [Concomitant]
     Route: 042
     Dates: start: 20111221
  18. NORMAL SALINE [Concomitant]
     Route: 042
     Dates: start: 20120104
  19. NORMAL SALINE [Concomitant]
     Route: 042
     Dates: start: 20120118

REACTIONS (9)
  - Lung neoplasm malignant [Fatal]
  - Metastases to central nervous system [Fatal]
  - Metastases to liver [Fatal]
  - Dizziness [Unknown]
  - Nausea [Unknown]
  - Vomiting [Unknown]
  - Eyelid ptosis [Unknown]
  - Arthralgia [Unknown]
  - Disease progression [Unknown]
